FAERS Safety Report 8119776-5 (Version None)
Quarter: 2011Q4

REPORT INFORMATION
  Report Type: 
  Country: None (occurrence: None)
  Receive Date: 20111227
  Receipt Date: 20111012
  Transmission Date: 20120403
  Serious: No
  Sender: FDA-Public Use
  Company Number: PHEH2011US05438

PATIENT
  Age: 47 Year
  Sex: Female

DRUGS (5)
  1. ESTRADIOL [Concomitant]
  2. GILENYA [Suspect]
     Indication: MULTIPLE SCLEROSIS
     Dosage: 0.5 MG, QD, ORAL
     Route: 048
     Dates: start: 20110315, end: 20110918
  3. SYNTHROID [Concomitant]
  4. SIMVASTATIN [Concomitant]
  5. MEDROXYPROGESTERONE [Concomitant]

REACTIONS (4)
  - MUSCLE SPASMS [None]
  - DIARRHOEA [None]
  - ABDOMINAL PAIN LOWER [None]
  - OROPHARYNGEAL PAIN [None]
